FAERS Safety Report 6866837-4 (Version None)
Quarter: 2010Q2

REPORT INFORMATION
  Report Type: 
  Country: None (occurrence: None)
  Receive Date: 20100607
  Receipt Date: 20080310
  Transmission Date: 20101027
  Serious: No
  Sender: FDA-Public Use
  Company Number: 2008-00058

PATIENT
  Age: 39 Year
  Sex: Male
  Weight: 97.5234 kg

DRUGS (4)
  1. ZICAM COLD REMEDY NASAL GEL [Suspect]
     Indication: NASOPHARYNGITIS
     Dosage: INTERMITTENTLY X 16 MOS
     Dates: start: 20061101, end: 20080310
  2. PROTON PUMP INHIBITOR [Concomitant]
  3. TRICOR [Concomitant]
  4. ZICAM COLD REMEDY ORAL MIST [Concomitant]

REACTIONS (2)
  - AGEUSIA [None]
  - ANOSMIA [None]
